FAERS Safety Report 13359455 (Version 3)
Quarter: 2017Q2

REPORT INFORMATION
  Report Type: Report from Study
  Country: NL (occurrence: NL)
  Receive Date: 20170322
  Receipt Date: 20170511
  Transmission Date: 20170830
  Serious: Yes (Other)
  Sender: FDA-Public Use
  Company Number: PHHO2017NL005346

PATIENT
  Age: 9 Year
  Sex: Male
  Weight: 38.5 kg

DRUGS (8)
  1. DACTINOMYCIN [Concomitant]
     Active Substance: DACTINOMYCIN
     Indication: EWING^S SARCOMA
     Dosage: UNK
     Route: 042
     Dates: start: 20151123, end: 20160420
  2. IFOSFAMIDE. [Concomitant]
     Active Substance: IFOSFAMIDE
     Dosage: UNK
     Route: 042
     Dates: start: 20151123, end: 20160420
  3. ETOPOSIDE. [Concomitant]
     Active Substance: ETOPOSIDE
     Indication: EWING^S SARCOMA
     Dosage: UNK
     Route: 042
     Dates: start: 20150702, end: 20151017
  4. VINCRISTINE [Concomitant]
     Active Substance: VINCRISTINE
     Indication: EWING^S SARCOMA
     Dosage: UNK
     Route: 042
     Dates: start: 20150702, end: 20151017
  5. VINCRISTINE [Concomitant]
     Active Substance: VINCRISTINE
     Dosage: UNK
     Route: 042
     Dates: start: 20151123, end: 20160420
  6. ZOLEDRONATE [Suspect]
     Active Substance: ZOLEDRONIC ACID
     Indication: EWING^S SARCOMA
     Dosage: 0.05 MG/KG (EVERY 3 TO 4 WEEKS 1X1.76 MG, 1X1.96 MG, 7X2 MG (9 X ^GIFTS^ ONCE))
     Route: 042
     Dates: start: 20160308, end: 20161006
  7. IFOSFAMIDE. [Concomitant]
     Active Substance: IFOSFAMIDE
     Indication: EWING^S SARCOMA
     Dosage: UNK
     Route: 042
     Dates: start: 20150702, end: 20151017
  8. DOXORUBICIN [Concomitant]
     Active Substance: DOXORUBICIN
     Indication: EWING^S SARCOMA
     Dosage: UNK
     Route: 042
     Dates: start: 20150702, end: 20151017

REACTIONS (1)
  - Calcinosis [Not Recovered/Not Resolved]

NARRATIVE: CASE EVENT DATE: 20170302
